FAERS Safety Report 19547836 (Version 2)
Quarter: 2021Q3

REPORT INFORMATION
  Report Type: Spontaneous
  Country: FR (occurrence: FR)
  Receive Date: 20210714
  Receipt Date: 20210716
  Transmission Date: 20211014
  Serious: Yes (Hospitalization)
  Sender: FDA-Public Use
  Company Number: FR-MYLANLABS-2021M1041705

PATIENT
  Age: 64 Year
  Sex: Female
  Weight: 62 kg

DRUGS (2)
  1. IDARUBICIN [Suspect]
     Active Substance: IDARUBICIN
     Indication: ACUTE MYELOID LEUKAEMIA
     Dosage: 13 MILLIGRAM TOTAL
     Route: 042
     Dates: start: 20201112, end: 20201112
  2. ARACYTINE [Suspect]
     Active Substance: CYTARABINE
     Indication: ACUTE MYELOID LEUKAEMIA
     Dosage: 160 MILLIGRAM, QD
     Route: 058
     Dates: start: 20201112, end: 20201116

REACTIONS (1)
  - Chondrocalcinosis [Recovered/Resolved]

NARRATIVE: CASE EVENT DATE: 20201121
